FAERS Safety Report 8046511-1 (Version None)
Quarter: 2012Q1

REPORT INFORMATION
  Report Type: 
  Country: None (occurrence: None)
  Receive Date: 20120113
  Receipt Date: 20111226
  Transmission Date: 20120608
  Serious: Yes (Hospitalization)
  Sender: FDA-Public Use
  Company Number: VE-ABBOTT-12P-178-0892945-00

PATIENT
  Sex: Female
  Weight: 75 kg

DRUGS (5)
  1. PLAQUINOL TAB [Concomitant]
     Indication: RHEUMATOID ARTHRITIS
  2. CRESTOR [Concomitant]
     Indication: HYPERLIPIDAEMIA
  3. HUMIRA [Suspect]
     Indication: RHEUMATOID ARTHRITIS
     Route: 058
     Dates: start: 20090101, end: 20111130
  4. ARAVA [Concomitant]
     Indication: RHEUMATOID ARTHRITIS
  5. EFFONTIL [Concomitant]
     Indication: HYPOTENSION

REACTIONS (1)
  - PERIPHERAL VASCULAR DISORDER [None]
